FAERS Safety Report 21504096 (Version 1)
Quarter: 2022Q4

REPORT INFORMATION
  Report Type: Spontaneous
  Country: US (occurrence: US)
  Receive Date: 20221025
  Receipt Date: 20221025
  Transmission Date: 20230113
  Serious: No
  Sender: FDA-Public Use
  Company Number: US-MYLANLABS-2022M1095630

PATIENT
  Sex: Female

DRUGS (2)
  1. SEMGLEE (INSULIN GLARGINE-YFGN) [Suspect]
     Active Substance: INSULIN GLARGINE-YFGN
     Indication: Type 2 diabetes mellitus
     Dosage: 100 INTERNATIONAL UNIT
     Route: 058
  2. TRULICITY [Concomitant]
     Active Substance: DULAGLUTIDE
     Dosage: 7.5 INTERNATIONAL UNIT
     Route: 065

REACTIONS (5)
  - Exercise tolerance decreased [Unknown]
  - Weight increased [Unknown]
  - Device defective [Unknown]
  - Product packaging quantity issue [Unknown]
  - Needle issue [Unknown]
